FAERS Safety Report 5338747-5 (Version None)
Quarter: 2007Q2

REPORT INFORMATION
  Report Type: 
  Country: None (occurrence: None)
  Receive Date: 20070322
  Receipt Date: 20060320
  Transmission Date: 20071010
  Serious: Yes (Hospitalization)
  Sender: FDA-Public Use
  Company Number: 200610671BCC

PATIENT
  Age: 49 Year
  Sex: Male
  Weight: 95.2554 kg

DRUGS (2)
  1. ALEVE [Suspect]
     Indication: PAIN IN EXTREMITY
     Dosage: 220 MG, QD, ORAL
     Route: 048
     Dates: start: 20050929, end: 20051006
  2. CYCLOBENZAPRINE HCL [Concomitant]

REACTIONS (6)
  - ABDOMINAL PAIN UPPER [None]
  - CARDIO-RESPIRATORY ARREST [None]
  - GASTRIC ULCER PERFORATION [None]
  - HAEMATEMESIS [None]
  - HAEMOPTYSIS [None]
  - LOSS OF CONSCIOUSNESS [None]
